FAERS Safety Report 16936411 (Version 3)
Quarter: 2019Q4

REPORT INFORMATION
  Report Type: Spontaneous
  Country: AU (occurrence: AU)
  Receive Date: 20191018
  Receipt Date: 20191227
  Transmission Date: 20200122
  Serious: Yes (Other)
  Sender: FDA-Public Use
  Company Number: AU-REGENERON PHARMACEUTICALS, INC.-2019-59906

PATIENT

DRUGS (2)
  1. EYLEA [Suspect]
     Active Substance: AFLIBERCEPT
     Indication: AGE-RELATED MACULAR DEGENERATION
     Dosage: 1 DF, ONCE, LEFT EYE
     Dates: start: 20190830
  2. EYLEA [Suspect]
     Active Substance: AFLIBERCEPT
     Dosage: 1 DF, ONCE, LEFT EYE
     Dates: start: 20190927, end: 20190927

REACTIONS (3)
  - Serum ferritin decreased [Not Recovered/Not Resolved]
  - Muscular weakness [Unknown]
  - Lymphoedema [Unknown]

NARRATIVE: CASE EVENT DATE: 201909
